FAERS Safety Report 7494436-2 (Version None)
Quarter: 2011Q2

REPORT INFORMATION
  Report Type: 
  Country: None (occurrence: None)
  Receive Date: 20110520
  Receipt Date: 20110418
  Transmission Date: 20111010
  Serious: Yes (Other)
  Sender: FDA-Public Use
  Company Number: US-BAYER-2011-008336

PATIENT
  Age: 25 Year
  Sex: Female
  Weight: 125.17 kg

DRUGS (4)
  1. YASMIN [Suspect]
     Indication: PREMENSTRUAL SYNDROME
  2. YAZ [Suspect]
     Indication: PREMENSTRUAL SYNDROME
  3. YAZ [Suspect]
     Indication: ACNE
     Dosage: UNK
     Dates: start: 20010101, end: 20090101
  4. YASMIN [Suspect]
     Indication: ACNE
     Dosage: UNK
     Dates: start: 20010101, end: 20090101

REACTIONS (5)
  - CHOLECYSTITIS ACUTE [None]
  - PAIN [None]
  - CHOLELITHIASIS [None]
  - INJURY [None]
  - CHOLECYSTECTOMY [None]
